FAERS Safety Report 9235270 (Version 2)
Quarter: 2013Q2

REPORT INFORMATION
  Report Type: Spontaneous
  Country: US (occurrence: US)
  Receive Date: 20130417
  Receipt Date: 20130426
  Transmission Date: 20140414
  Serious: Yes (Other)
  Sender: FDA-Public Use
  Company Number: US-BIOGENIDEC-2013BI034575

PATIENT
  Age: 50 Year
  Sex: Female

DRUGS (4)
  1. AVONEX [Suspect]
     Indication: MULTIPLE SCLEROSIS
     Route: 030
  2. AVONEX [Suspect]
     Indication: MULTIPLE SCLEROSIS
     Route: 030
     Dates: start: 20001222
  3. KEPPRA [Concomitant]
  4. PHENYTOIN [Concomitant]
     Dates: start: 20130212

REACTIONS (3)
  - Convulsion [Recovered/Resolved]
  - Somnolence [Unknown]
  - Influenza like illness [Not Recovered/Not Resolved]
